FAERS Safety Report 4545334-5 (Version None)
Quarter: 2004Q4

REPORT INFORMATION
  Report Type: 
  Country: None (occurrence: None)
  Receive Date: 20041222
  Receipt Date: 20040520
  Transmission Date: 20050328
  Serious: Yes (Hospitalization)
  Sender: FDA-Public Use
  Company Number: USA020617717

PATIENT
  Age: 61 Year
  Sex: Female

DRUGS (4)
  1. HUMULIN R [Suspect]
     Indication: DIABETES MELLITUS
  2. HUMULIN N [Suspect]
     Indication: DIABETES MELLITUS
  3. HUMALOG [Suspect]
     Indication: DIABETES MELLITUS
     Dates: start: 20020301
  4. LANTUS [Concomitant]

REACTIONS (11)
  - BLOOD DISORDER [None]
  - BLOOD GLUCOSE INCREASED [None]
  - CATARACT [None]
  - EYE DISORDER [None]
  - HEARING IMPAIRED [None]
  - HOSPITALISATION [None]
  - LUNG DISORDER [None]
  - MACULAR DEGENERATION [None]
  - PHARYNGOLARYNGEAL PAIN [None]
  - SINUSITIS [None]
  - VISUAL ACUITY REDUCED [None]
